FAERS Safety Report 7418122-X (Version None)
Quarter: 2011Q2

REPORT INFORMATION
  Report Type: 
  Country: None (occurrence: None)
  Receive Date: 20110415
  Receipt Date: 20110401
  Transmission Date: 20111010
  Serious: Yes (Other)
  Sender: FDA-Public Use
  Company Number: US-WATSON-2011-03448

PATIENT
  Age: 60 Year
  Sex: Male

DRUGS (3)
  1. SULFASALAZINE [Suspect]
     Dosage: 500 MG, BID
     Route: 048
  2. SULFASALAZINE [Suspect]
     Indication: INFLAMMATORY BOWEL DISEASE
     Dosage: 500 MG, QID
     Route: 048
  3. WARFARIN [Concomitant]
     Indication: PROPHYLAXIS
     Dosage: 40 MG, DAILY

REACTIONS (2)
  - POTENTIATING DRUG INTERACTION [None]
  - INTERNATIONAL NORMALISED RATIO INCREASED [None]
